FAERS Safety Report 5625015-7 (Version None)
Quarter: 2008Q1

REPORT INFORMATION
  Report Type: 
  Country: None (occurrence: None)
  Receive Date: 20080213
  Receipt Date: 20080201
  Transmission Date: 20080703
  Serious: Yes (Other)
  Sender: FDA-Public Use
  Company Number: US-PFIZER INC-2007102913

PATIENT
  Sex: Female
  Weight: 81.818 kg

DRUGS (7)
  1. DILANTIN [Suspect]
     Indication: CONVULSION
     Dosage: DAILY DOSE:200MG-FREQ:EVERY NIGHT
  2. HYDROCHLOROTHIAZIDE [Suspect]
     Indication: BLOOD PRESSURE INCREASED
  3. PHENOBARBITAL TAB [Suspect]
     Indication: CONVULSION
  4. PRIMIDONE [Suspect]
     Indication: CONVULSION
  5. ESTRADIOL [Concomitant]
  6. VITAMIN D [Concomitant]
  7. POTASSIUM CHLORIDE [Concomitant]

REACTIONS (8)
  - BALANCE DISORDER [None]
  - BODY HEIGHT DECREASED [None]
  - CONTUSION [None]
  - DEPRESSION [None]
  - FALL [None]
  - HYPERTENSION [None]
  - JOINT SWELLING [None]
  - NAUSEA [None]
